FAERS Safety Report 8458375-2 (Version None)
Quarter: 2012Q2

REPORT INFORMATION
  Report Type: 
  Country: None (occurrence: None)
  Receive Date: 20120615
  Receipt Date: 20120604
  Transmission Date: 20120825
  Serious: Yes (Hospitalization, Other)
  Sender: FDA-Public Use
  Company Number: 2012P1037787

PATIENT
  Age: 57 Year
  Sex: Male

DRUGS (10)
  1. LACTULOSE [Concomitant]
  2. SEVELAMER [Concomitant]
  3. DILTIAZEM HYDROCHOLORIDE [Concomitant]
  4. ASPIRIN [Concomitant]
  5. DOCUSATE [Concomitant]
  6. TAMSULOSIN HCL [Concomitant]
  7. FERROUS SULFATE TAB [Concomitant]
  8. GABAPENTIN [Suspect]
     Dosage: 900 MG, QD
  9. FINASTERIDE [Concomitant]
  10. LANTUS [Concomitant]

REACTIONS (12)
  - DIALYSIS [None]
  - SOMNOLENCE [None]
  - RENAL TUBULAR NECROSIS [None]
  - PAIN IN EXTREMITY [None]
  - TOXICITY TO VARIOUS AGENTS [None]
  - ALTERED STATE OF CONSCIOUSNESS [None]
  - DRUG LEVEL ABOVE THERAPEUTIC [None]
  - BLOOD GLUCOSE DECREASED [None]
  - BLOOD ELECTROLYTES ABNORMAL [None]
  - NEUROTOXICITY [None]
  - RENAL FAILURE ACUTE [None]
  - MUSCLE TWITCHING [None]
